FAERS Safety Report 8809673 (Version 4)
Quarter: 2013Q2

REPORT INFORMATION
  Report Type: Report from Study
  Country: MX (occurrence: MX)
  Receive Date: 20120926
  Receipt Date: 20130430
  Transmission Date: 20140414
  Serious: No
  Sender: FDA-Public Use
  Company Number: MX-ABBOTT-12P-107-0988004-00

PATIENT
  Age: 38 Year
  Sex: Male
  Weight: 53 kg

DRUGS (3)
  1. EPIVAL ER [Suspect]
     Indication: BIPOLAR DISORDER
     Dosage: 1 TAB AT AM AND 1 TAB AT NIGHT
     Route: 048
     Dates: start: 20120805, end: 201301
  2. OMEPRAZOLE [Concomitant]
     Indication: COLITIS
     Dosage: BEFORE BREAKFAST
     Route: 048
     Dates: start: 201207
  3. ZYPREXA ZYDIS [Concomitant]
     Indication: BIPOLAR DISORDER
     Dosage: AT NIGHT
     Route: 048
     Dates: start: 20120906

REACTIONS (2)
  - Restlessness [Recovered/Resolved]
  - Vision blurred [Recovered/Resolved]
